FAERS Safety Report 23653126 (Version 1)
Quarter: 2024Q1

REPORT INFORMATION
  Report Type: Spontaneous
  Country: US (occurrence: US)
  Receive Date: 20240320
  Receipt Date: 20240320
  Transmission Date: 20240410
  Serious: No
  Sender: FDA-Public Use
  Company Number: US-BRISTOL-MYERS SQUIBB COMPANY-2024-043176

PATIENT
  Age: 52 Year
  Sex: Female
  Weight: 86.64 kg

DRUGS (4)
  1. ORENCIA [Suspect]
     Active Substance: ABATACEPT
     Indication: Rheumatoid arthritis
     Route: 058
  2. ORENCIA [Suspect]
     Active Substance: ABATACEPT
     Indication: Sjogren^s syndrome
  3. LEVOTHYROXINE [Concomitant]
     Active Substance: LEVOTHYROXINE\LEVOTHYROXINE SODIUM
     Indication: Thyroid disorder
  4. NALTREXONE [Concomitant]
     Active Substance: NALTREXONE
     Indication: Rheumatoid arthritis
     Dosage: LOW DOSE

REACTIONS (3)
  - General physical health deterioration [Unknown]
  - Therapeutic response shortened [Unknown]
  - Product label issue [Unknown]

NARRATIVE: CASE EVENT DATE: 20240301
